FAERS Safety Report 21217736 (Version 1)
Quarter: 2022Q3

REPORT INFORMATION
  Report Type: Spontaneous
  Country: US (occurrence: None)
  Receive Date: 20220816
  Receipt Date: 20220816
  Transmission Date: 20221026
  Serious: Yes (unspecified)
  Sender: FDA-Public Use
  Company Number: None

PATIENT
  Age: 56 Year
  Sex: Female
  Weight: 56.7 kg

DRUGS (1)
  1. BALVERSA [Suspect]
     Active Substance: ERDAFITINIB
     Indication: Transitional cell carcinoma
     Dosage: FREQUENCY : DAILY;?
     Route: 048
     Dates: start: 20220601

REACTIONS (7)
  - Therapy interrupted [None]
  - Hyperphosphataemia [None]
  - Alopecia [None]
  - Nail bed disorder [None]
  - Muscle spasms [None]
  - Dysgeusia [None]
  - Dry eye [None]

NARRATIVE: CASE EVENT DATE: 20220713
